FAERS Safety Report 5904622-8 (Version None)
Quarter: 2008Q3

REPORT INFORMATION
  Report Type: 
  Country: None (occurrence: None)
  Receive Date: 20080930
  Receipt Date: 20080930
  Transmission Date: 20090109
  Serious: Yes (Hospitalization)
  Sender: FDA-Public Use
  Company Number: None

PATIENT
  Age: 31 Year
  Sex: Female
  Weight: 67.6 kg

DRUGS (1)
  1. ASPIRIN,BUTALBITAL,CAFFEINE [Suspect]
     Indication: HEADACHE
     Dosage: 1 TAB MG PRN PO
     Route: 048
     Dates: start: 20080424, end: 20080913

REACTIONS (6)
  - AGGRESSION [None]
  - AGITATION [None]
  - BLOOD GLUCOSE DECREASED [None]
  - POISONING [None]
  - SEDATION [None]
  - TEARFULNESS [None]
